FAERS Safety Report 8920606 (Version 1)
Quarter: 2012Q4

REPORT INFORMATION
  Report Type: 
  Country: ES (occurrence: ES)
  Receive Date: 20121121
  Receipt Date: 20121121
  Transmission Date: 20130627
  Serious: Yes (Death)
  Sender: FDA-Public Use
  Company Number: ES-009507513-1211ESP007748

PATIENT
  Age: 27 Year
  Sex: Male

DRUGS (8)
  1. AMITRIPTYLINE HYDROCHLORIDE [Suspect]
     Indication: DEPRESSION
     Dosage: 75 mg, qd
     Route: 048
     Dates: start: 20121102, end: 20121105
  2. AMITRIPTYLINE HYDROCHLORIDE [Suspect]
     Dosage: 25 mg, qd
     Route: 048
     Dates: start: 20121001, end: 20121027
  3. AMITRIPTYLINE HYDROCHLORIDE [Suspect]
     Dosage: 50 mg, qd
     Route: 048
     Dates: start: 20121028, end: 20121101
  4. LYRICA [Suspect]
     Indication: MONOPARESIS
     Dosage: 75 mg, bid
     Route: 048
     Dates: start: 20121001, end: 20121105
  5. FORTECORTIN [Suspect]
     Indication: MONOPARESIS
     Dosage: 1 mg, bid
     Route: 048
     Dates: start: 20121025, end: 20121105
  6. OMEPRAZOLE [Concomitant]
     Indication: PROPHYLAXIS
     Dosage: 20 mg, qd
     Route: 048
     Dates: start: 20121024, end: 20121105
  7. LORAZEPAM [Concomitant]
     Indication: DEPRESSION
     Dosage: 1 mg, qd
     Route: 048
     Dates: start: 20121028, end: 20121105
  8. DICLOFENAC SODIUM (+) MISOPROSTOL [Concomitant]
     Dosage: 50/200mg tid
     Dates: start: 20120904, end: 20121105

REACTIONS (1)
  - Completed suicide [Fatal]
